FAERS Safety Report 7319989-6 (Version None)
Quarter: 2011Q1

REPORT INFORMATION
  Report Type: 
  Country: None (occurrence: None)
  Receive Date: 20110228
  Receipt Date: 20110215
  Transmission Date: 20110831
  Serious: Yes (Hospitalization)
  Sender: FDA-Public Use
  Company Number: PHHY2011BR13655

PATIENT
  Sex: Female

DRUGS (10)
  1. AAS [Concomitant]
     Dosage: 2 TABLETS DAILY
     Route: 048
     Dates: start: 20060101
  2. PLAVIX [Concomitant]
     Dosage: UNK
     Route: 048
     Dates: start: 20060101
  3. ANCORON [Concomitant]
     Indication: ARRHYTHMIA
     Dosage: 1 DF,DAILY
  4. DIOVAN HCT [Suspect]
     Indication: HYPERTENSION
     Dosage: 160 MG OF VALS AND 12.5 MG OF HYD DAILY
     Route: 048
     Dates: start: 20060101
  5. CRESTOR [Concomitant]
     Indication: BLOOD CHOLESTEROL
     Dosage: 1 TABLET DAILY
     Route: 048
     Dates: start: 20060101
  6. STABLON [Concomitant]
     Indication: DEPRESSION
     Dosage: 1 TABLET DAILY
     Route: 048
  7. VITERGAN [Concomitant]
     Indication: DIZZINESS
     Route: 048
  8. CONCOR [Concomitant]
     Indication: ARRHYTHMIA
     Dosage: UNK
     Route: 048
     Dates: start: 20101101
  9. OMEPRAZOLE [Concomitant]
     Dosage: 1 TABLET DAILY
  10. RIVOTRIL [Concomitant]
     Dosage: HALF TABLET
     Route: 048

REACTIONS (2)
  - ARRHYTHMIA [None]
  - BLOOD PRESSURE FLUCTUATION [None]
